FAERS Safety Report 8592573-2 (Version None)
Quarter: 2012Q3

REPORT INFORMATION
  Report Type: 
  Country: None (occurrence: None)
  Receive Date: 20120814
  Receipt Date: 20120810
  Transmission Date: 20120928
  Serious: Yes (Other)
  Sender: FDA-Public Use
  Company Number: GB-BAYER-2012-081864

PATIENT
  Age: 61 Year
  Sex: Female

DRUGS (1)
  1. BETASERON [Suspect]
     Indication: MULTIPLE SCLEROSIS
     Dosage: 62.5 ?G, QOD
     Route: 058
     Dates: start: 20120808

REACTIONS (6)
  - MOBILITY DECREASED [None]
  - INFLUENZA LIKE ILLNESS [None]
  - CHILLS [None]
  - FATIGUE [None]
  - ABASIA [None]
  - INSOMNIA [None]
